FAERS Safety Report 7619248-8 (Version None)
Quarter: 2011Q3

REPORT INFORMATION
  Report Type: 
  Country: None (occurrence: None)
  Receive Date: 20110718
  Receipt Date: 20110711
  Transmission Date: 20111222
  Serious: Yes (Hospitalization, Other)
  Sender: FDA-Public Use
  Company Number: US-ASTRAZENECA-2011SE41220

PATIENT
  Age: 69 Year
  Sex: Female

DRUGS (3)
  1. SPIRIVA [Concomitant]
  2. PROAIR HFA [Concomitant]
  3. SYMBICORT [Suspect]
     Route: 055

REACTIONS (6)
  - EMPHYSEMA [None]
  - PAIN [None]
  - PNEUMOTHORAX [None]
  - CHRONIC OBSTRUCTIVE PULMONARY DISEASE [None]
  - DYSPHONIA [None]
  - THORACIC OPERATION [None]
